FAERS Safety Report 20781569 (Version 1)
Quarter: 2022Q2

REPORT INFORMATION
  Report Type: Report from Study
  Country: TR (occurrence: TR)
  Receive Date: 20220504
  Receipt Date: 20220504
  Transmission Date: 20220721
  Serious: Yes (Other)
  Sender: FDA-Public Use
  Company Number: TR-SUN PHARMACEUTICAL INDUSTRIES LTD-2022R1-334799

PATIENT
  Age: 70 Year

DRUGS (4)
  1. CISPLATIN [Suspect]
     Active Substance: CISPLATIN
     Indication: Metastatic gastric cancer
     Dosage: 50 MILLIGRAM/SQ. METER, DAY 1
     Route: 042
  2. DOCETAXEL [Suspect]
     Active Substance: DOCETAXEL
     Indication: Metastatic gastric cancer
     Dosage: 60 MILLIGRAM/SQ. METER, 1DOSE/2 WEEKS, DAY 1
     Route: 042
  3. FLUOROURACIL [Suspect]
     Active Substance: FLUOROURACIL
     Indication: Metastatic gastric cancer
     Dosage: 400 MILLIGRAM/SQ. METER, DAY 1
     Route: 042
  4. LEUCOVORIN [Concomitant]
     Active Substance: LEUCOVORIN
     Indication: Metastatic gastric cancer
     Dosage: 400 MILLIGRAM/SQ. METER, DAY 1
     Route: 042

REACTIONS (2)
  - Neutropenic infection [Unknown]
  - Mucosal inflammation [Unknown]
